FAERS Safety Report 11951608 (Version 1)
Quarter: 2016Q1

REPORT INFORMATION
  Report Type: Spontaneous
  Country: US (occurrence: US)
  Receive Date: 20160125
  Receipt Date: 20160125
  Transmission Date: 20160526
  Serious: No
  Sender: FDA-Public Use
  Company Number: US-GLAXOSMITHKLINE-US2016GSK007099

PATIENT
  Age: 85 Year
  Sex: Female

DRUGS (1)
  1. FLOVENT [Suspect]
     Active Substance: FLUTICASONE PROPIONATE
     Dosage: UNK, PRN

REACTIONS (5)
  - Dyspnoea [Unknown]
  - Back pain [Unknown]
  - Drug ineffective [Unknown]
  - Cardiac disorder [Unknown]
  - Physiotherapy [Unknown]

NARRATIVE: CASE EVENT DATE: 2015
